FAERS Safety Report 9643412 (Version 2)
Quarter: 2013Q4

REPORT INFORMATION
  Report Type: Report from Study
  Country: US (occurrence: US)
  Receive Date: 20131024
  Receipt Date: 20131024
  Transmission Date: 20140711
  Serious: Yes (Hospitalization)
  Sender: FDA-Public Use
  Company Number: PHHO2013US013385

PATIENT
  Age: 61 Year
  Sex: Male
  Weight: 83.45 kg

DRUGS (11)
  1. PARACETAMOL 1A PHARMA [Suspect]
     Indication: BACK PAIN
     Dosage: 500 MG, Q6H
  2. PARACETAMOL 1A PHARMA [Suspect]
     Indication: HEADACHE
     Dosage: 325 MG, Q4H, PRN
     Dates: start: 201308
  3. CLONAZEPAM [Suspect]
     Indication: BIPOLAR DISORDER
     Dosage: 0.5 MG, QD
     Dates: start: 20130623
  4. BLINDED ACZ885 [Suspect]
     Indication: CARDIOVASCULAR EVENT PROPHYLAXIS
     Dosage: CODE NOT BROKEN
     Route: 058
     Dates: start: 20121018
  5. BLINDED NO TREATMENT RECEIVED [Suspect]
     Indication: CARDIOVASCULAR EVENT PROPHYLAXIS
     Dosage: CODE NOT BROKEN
     Route: 058
     Dates: start: 20121018
  6. BLINDED PLACEBO [Suspect]
     Indication: CARDIOVASCULAR EVENT PROPHYLAXIS
     Dosage: CODE NOT BROKEN
     Route: 058
     Dates: start: 20121018
  7. HYDROCODONE [Suspect]
     Indication: BACK PAIN
     Dosage: 10 MG, Q4H, PRN
  8. BUTALBITAL [Suspect]
     Indication: HEADACHE
     Dosage: 50 MG, Q4H,PRN
     Dates: start: 201308
  9. CAFFEINE [Suspect]
     Indication: HEADACHE
     Dosage: 40 MG, Q4H, PRN
     Dates: start: 201308
  10. SERTRALINE [Concomitant]
     Indication: DEPRESSION
     Dosage: 100 MG, BID
     Dates: start: 20130602
  11. ABILIFY [Concomitant]
     Indication: DEPRESSION
     Dosage: Q

REACTIONS (1)
  - Toxic encephalopathy [Recovered/Resolved]
